FAERS Safety Report 8606322-2 (Version None)
Quarter: 2012Q3

REPORT INFORMATION
  Report Type: 
  Country: None (occurrence: None)
  Receive Date: 20120820
  Receipt Date: 20120806
  Transmission Date: 20120928
  Serious: Yes (Other)
  Sender: FDA-Public Use
  Company Number: US-JNJFOC-20120710835

PATIENT
  Sex: Female

DRUGS (6)
  1. TYLENOL [Suspect]
     Route: 064
  2. ZYRTEC [Suspect]
     Indication: FOETAL EXPOSURE DURING PREGNANCY
     Route: 064
  3. REMICADE [Suspect]
     Indication: FOETAL EXPOSURE DURING PREGNANCY
     Dosage: THE BABY'S MOTHER WAS TREATED WITH INFLIXIMAB, RECOMBINANT 500 MG ONCE EVERY 4 WEEKS
     Route: 064
  4. TYLENOL [Suspect]
     Indication: FOETAL EXPOSURE DURING PREGNANCY
     Route: 064
  5. ZYRTEC [Suspect]
     Route: 064
  6. TRANDATE [Concomitant]
     Indication: FOETAL EXPOSURE DURING PREGNANCY
     Route: 064

REACTIONS (2)
  - PREMATURE BABY [None]
  - LOW BIRTH WEIGHT BABY [None]
